FAERS Safety Report 10327771 (Version 2)
Quarter: 2014Q3

REPORT INFORMATION
  Report Type: Spontaneous
  Country: DE (occurrence: DE)
  Receive Date: 20140721
  Receipt Date: 20140721
  Transmission Date: 20150326
  Serious: Yes (Hospitalization, Other)
  Sender: FDA-Public Use
  Company Number: DE-UCBSA-2014003202

PATIENT
  Age: 48 Year
  Sex: Female
  Weight: 70 kg

DRUGS (3)
  1. KEPPRA [Suspect]
     Active Substance: LEVETIRACETAM
     Indication: APALLIC SYNDROME
     Dosage: 1250 MG, 2X/DAY (BID), ROUTE: VIA TUBE
     Dates: start: 20120206
  2. ERGENYL [Suspect]
     Active Substance: VALPROIC ACID
     Indication: APALLIC SYNDROME
     Dosage: 450 MG IN MORNING, 300 MG AT MIDDAY, 300 MG IN EVENING AND 450 MG AT NIGHT, VIA TUBE
     Dates: start: 20120206
  3. PHENYTOIN. [Concomitant]
     Active Substance: PHENYTOIN
     Indication: CONVULSION

REACTIONS (13)
  - Muscle twitching [Not Recovered/Not Resolved]
  - Bronchitis [Unknown]
  - Ventricular fibrillation [Unknown]
  - Cerebral infarction [Unknown]
  - Urinary tract infection [Unknown]
  - Bradycardia [Unknown]
  - Cerebellar ischaemia [Unknown]
  - Blood thyroid stimulating hormone increased [Unknown]
  - Blood potassium increased [Unknown]
  - Myoclonus [Unknown]
  - Drug administration error [Unknown]
  - Brain stem ischaemia [Unknown]
  - Hydrocephalus [Unknown]

NARRATIVE: CASE EVENT DATE: 2012
